FAERS Safety Report 7451114-3 (Version None)
Quarter: 2011Q2

REPORT INFORMATION
  Report Type: 
  Country: None (occurrence: None)
  Receive Date: 20110429
  Receipt Date: 20110429
  Transmission Date: 20111010
  Serious: Yes (Hospitalization)
  Sender: FDA-Public Use
  Company Number: None

PATIENT
  Age: 86 Year
  Sex: Female

DRUGS (17)
  1. TIKOSYN [Concomitant]
  2. COUMADIN [Suspect]
     Indication: ATRIAL FIBRILLATION
     Dosage: 7.5MG MTTHFSAT PO CHRONIC
     Route: 048
  3. ZANTAC [Concomitant]
  4. COUMADIN [Suspect]
     Indication: ATRIAL FIBRILLATION
     Dosage: 5MG SUN + WED PO CHRONIC
     Route: 048
  5. M.V.I. [Concomitant]
  6. METFORMIN HCL [Concomitant]
  7. ADVAIR DISKUS 100/50 [Concomitant]
  8. LASIX [Concomitant]
  9. COMBIVENT [Concomitant]
  10. LISINOPRIL [Concomitant]
  11. LEVOTHYROXINE SODIUM [Concomitant]
  12. CALCIUM + D [Concomitant]
  13. VIT C [Concomitant]
  14. GAVISCON [Concomitant]
  15. VIT B12 [Concomitant]
  16. ACETAMINOPHEN [Concomitant]
  17. IRON SULFITE [Concomitant]

REACTIONS (5)
  - HIATUS HERNIA [None]
  - ACQUIRED OESOPHAGEAL WEB [None]
  - GASTROINTESTINAL HAEMORRHAGE [None]
  - DIVERTICULUM [None]
  - ANAEMIA [None]
